FAERS Safety Report 17215558 (Version 1)
Quarter: 2019Q4

REPORT INFORMATION
  Report Type: Report from Study
  Country: US (occurrence: US)
  Receive Date: 20191230
  Receipt Date: 20191230
  Transmission Date: 20200122
  Serious: Yes (Other)
  Sender: FDA-Public Use
  Company Number: US-PFIZER INC-2017074317

PATIENT
  Age: 76 Year
  Sex: Female
  Weight: 91.16 kg

DRUGS (22)
  1. IBRANCE [Suspect]
     Active Substance: PALBOCICLIB
     Dosage: 75 MG, CYCLIC (21 DAYS ON, 7 DAYS OFF)
     Route: 048
     Dates: start: 20161220
  2. IBRANCE [Suspect]
     Active Substance: PALBOCICLIB
     Dosage: 75 MG, CYCLIC (DAILY WITH CYCLE 3)
     Route: 048
  3. IBRANCE [Suspect]
     Active Substance: PALBOCICLIB
     Dosage: 75 MG, CYCLIC (21 DAYS ON, 7 DAYS OFF)
     Route: 048
     Dates: start: 20170112
  4. IBRANCE [Suspect]
     Active Substance: PALBOCICLIB
     Dosage: 75 MG, CYCLIC (DAILY FOR DAY 1 - DAY 21 FOLLOWED)
     Route: 048
     Dates: start: 20161018
  5. VERAPAMIL [Concomitant]
     Active Substance: VERAPAMIL HYDROCHLORIDE
     Dosage: 120 MG, DAILY (Q. DAY)
     Route: 048
     Dates: start: 20160620
  6. IBRANCE [Suspect]
     Active Substance: PALBOCICLIB
     Dosage: 100 MG, CYCLIC (DAILY WITH CYCLE 2)
     Route: 048
  7. ATENOLOL. [Concomitant]
     Active Substance: ATENOLOL
     Dosage: 50 MG, DAILY (Q. DAY)
     Route: 048
     Dates: start: 20160620
  8. IBRANCE [Suspect]
     Active Substance: PALBOCICLIB
     Dosage: 100 MG, CYCLIC (DAILY FOR DAY 1 - DAY 21 FOLLOWED)
     Route: 048
     Dates: start: 20160918, end: 20161017
  9. CALCIUM [Concomitant]
     Active Substance: CALCIUM
     Dosage: 1250 MG, DAILY (Q. DAY)
     Route: 048
     Dates: start: 20160620
  10. POTASSIUM CL [Concomitant]
     Active Substance: POTASSIUM CHLORIDE
     Dosage: 20 MEQ, 1X/DAY  (ONCE DAILY ON THE DAYS OF TAKING FUROSEMIDE)
     Dates: start: 20161109
  11. LETROZOLE. [Concomitant]
     Active Substance: LETROZOLE
     Dosage: 2.5 MG, DAILY (Q. DAY)
     Route: 048
     Dates: start: 20161212
  12. ATIVAN [Concomitant]
     Active Substance: LORAZEPAM
     Dosage: 1 MG, 2X/DAY (WHEN NECESSARY)
     Route: 048
     Dates: start: 20160718
  13. IBRANCE [Suspect]
     Active Substance: PALBOCICLIB
     Indication: BREAST CANCER METASTATIC
     Dosage: 125 MG, CYCLIC (21/7)
     Route: 048
     Dates: start: 20160819
  14. VALSARTAN. [Concomitant]
     Active Substance: VALSARTAN
     Dosage: 320 MG, DAILY (Q. DAY)
     Route: 048
     Dates: start: 20160620
  15. DOXAZOCIN [Concomitant]
     Active Substance: DOXAZOSIN MESYLATE
     Dosage: 2 MG, DAILY (Q. DAY)
     Route: 048
     Dates: start: 20160620
  16. DIGOXIN. [Concomitant]
     Active Substance: DIGOXIN
     Dosage: 125 UG, DAILY (Q. DAY)
     Route: 048
     Dates: start: 20160620
  17. KLOR-CON M20 [Concomitant]
     Active Substance: POTASSIUM CHLORIDE
     Dosage: 1 DF, DAILY (ONCE DAILY ON THE DAYS OF TAKING FUROSEMIDE)
     Dates: start: 20161223
  18. PANTOPRAZOLE [Concomitant]
     Active Substance: PANTOPRAZOLE
     Dosage: 40 MG, DAILY (Q. DAY)
     Route: 048
     Dates: start: 20160620
  19. FUROSEMIDE. [Concomitant]
     Active Substance: FUROSEMIDE
     Dosage: 20 MG, DAILY (Q. DAY)
     Route: 048
     Dates: start: 20160620
  20. PROAIR HFA [Concomitant]
     Active Substance: ALBUTEROL SULFATE
     Dosage: UNK UNK, AS NEEDED (90 MCG/ACTUATION AEROSOL INHALER; 1 PUFF DAILY)
     Route: 055
     Dates: start: 20160620
  21. ECHINACEA [Concomitant]
     Active Substance: ECHINACEA, UNSPECIFIED
     Dosage: 125 MG, DAILY (Q. DAY) (UNSURE OF DOSE)
     Route: 048
     Dates: start: 20160620
  22. ELIQUIS [Concomitant]
     Active Substance: APIXABAN
     Dosage: 5 MG, 2X/DAY
     Route: 048
     Dates: start: 20161212

REACTIONS (5)
  - Bone marrow failure [Unknown]
  - Fatigue [Unknown]
  - Product dose omission [Unknown]
  - Alopecia [Unknown]
  - Memory impairment [Unknown]
